FAERS Safety Report 23579021 (Version 4)
Quarter: 2024Q2

REPORT INFORMATION
  Report Type: Spontaneous
  Country: FI (occurrence: FI)
  Receive Date: 20240229
  Receipt Date: 20240507
  Transmission Date: 20240716
  Serious: Yes (Other)
  Sender: FDA-Public Use
  Company Number: FI-ASTELLAS-2024US006254

PATIENT
  Age: 68 Year
  Sex: Male

DRUGS (27)
  1. PADCEV [Suspect]
     Active Substance: ENFORTUMAB VEDOTIN-EJFV
     Indication: Transitional cell carcinoma
     Dosage: 60 MG, D1, D8, AND D15 EVERY 4 WEEKS
     Route: 042
     Dates: start: 20231006, end: 20240122
  2. AQUALAN L [Concomitant]
     Indication: Product used for unknown indication
     Dosage: UNK UNK, UNKNOWN FREQ. (EO)
     Route: 065
  3. METOCLOPRAMIDE HYDROCHLORIDE [Concomitant]
     Active Substance: METOCLOPRAMIDE HYDROCHLORIDE
     Indication: Product used for unknown indication
     Dosage: 10 MG, 1X3
     Route: 065
  4. GRANISETRON STADA [Concomitant]
     Indication: Product used for unknown indication
     Dosage: 2 MG, UNKNOWN FREQ. (EO)
     Route: 065
  5. SODIUM PICOSULFATE [Concomitant]
     Active Substance: SODIUM PICOSULFATE
     Indication: Product used for unknown indication
     Dosage: 7.5 MG/ML 10GTT
     Route: 065
  6. LACTULOSE [Concomitant]
     Active Substance: LACTULOSE
     Indication: Product used for unknown indication
     Dosage: 670 MG/ML 15-30ML X 1
     Route: 065
  7. POLYETHYLENE GLYCOL 4000 [Concomitant]
     Active Substance: POLYETHYLENE GLYCOL 4000
     Indication: Product used for unknown indication
     Dosage: 12 G, 1X1
     Route: 065
  8. NALOXEGOL OXALATE [Concomitant]
     Active Substance: NALOXEGOL OXALATE
     Indication: Product used for unknown indication
     Dosage: 25 MG, 1X1
     Route: 065
  9. CALCIUM CARBONATE [Concomitant]
     Active Substance: CALCIUM CARBONATE
     Indication: Product used for unknown indication
     Dosage: 500 MG, 2+2
     Route: 065
  10. ARANESP [Concomitant]
     Active Substance: DARBEPOETIN ALFA
     Indication: Product used for unknown indication
     Dosage: 500 ?G, UNKNOWN FREQ.(PAUSED)
     Route: 065
  11. FUROSEMIDE [Concomitant]
     Active Substance: FUROSEMIDE
     Indication: Product used for unknown indication
     Dosage: 20 MG, UNKNOWN FREQ.(PAUSED)
     Route: 065
  12. KANDROZID [Concomitant]
     Indication: Product used for unknown indication
     Dosage: 4 MG, 1X1
     Route: 065
  13. TESTOSTERONE [Concomitant]
     Active Substance: TESTOSTERONE
     Indication: Product used for unknown indication
     Dosage: 20 MG/G 1X1
     Route: 065
  14. ALFUZOSIN HYDROCHLORIDE [Concomitant]
     Active Substance: ALFUZOSIN HYDROCHLORIDE
     Indication: Product used for unknown indication
     Dosage: 10 MG, 1X1
     Route: 065
  15. FINASTERID ORION [Concomitant]
     Indication: Product used for unknown indication
     Dosage: 5 MG, 1 X 1
     Route: 065
  16. PREDNISOLONE [Concomitant]
     Active Substance: PREDNISOLONE
     Indication: Product used for unknown indication
     Dosage: 5 MG, UNKNOWN FREQ.(PAUSED)
     Route: 065
  17. PREDNISOLONE [Concomitant]
     Active Substance: PREDNISOLONE
     Indication: Product used for unknown indication
     Dosage: 20 MG, 2 + 0.5
     Route: 065
  18. GABAPENTIN [Concomitant]
     Active Substance: GABAPENTIN
     Indication: Product used for unknown indication
     Dosage: 300 MG, 3+3+3
     Route: 065
  19. COTRIM [Concomitant]
     Active Substance: SULFAMETHOXAZOLE\TRIMETHOPRIM
     Indication: Product used for unknown indication
     Dosage: 80/400 MG 1P, UNKNOWN FREQ.
     Route: 065
  20. XGEVA [Concomitant]
     Active Substance: DENOSUMAB
     Indication: Product used for unknown indication
     Dosage: 120 MG, UNKNOWN FREQ. (EO)
     Route: 065
  21. OXYRATIO [Concomitant]
     Indication: Product used for unknown indication
     Dosage: 10 MG 25+25MG, UNKNOWN FREQ.
     Route: 065
  22. OXYRATIO [Concomitant]
     Indication: Product used for unknown indication
     Dosage: 5 MG 25+25MG, UNKNOWN FREQ.
     Route: 065
  23. OXYCODONE HYDROCHLORIDE [Concomitant]
     Active Substance: OXYCODONE HYDROCHLORIDE
     Indication: Product used for unknown indication
     Dosage: 10 MG, 1X1-4
     Route: 065
  24. FENTANYL [Concomitant]
     Active Substance: FENTANYL\FENTANYL CITRATE
     Indication: Product used for unknown indication
     Dosage: 100 ?G, UNKNOWN FREQ.(PAUSED)
     Route: 065
  25. Panadol forte [Concomitant]
     Indication: Product used for unknown indication
     Dosage: 1 G, 1X3
     Route: 065
  26. CLONAZEPAM [Concomitant]
     Active Substance: CLONAZEPAM
     Indication: Product used for unknown indication
     Dosage: 0.5 MG, 1+1+1
     Route: 065
  27. TEGRETOL XR [Concomitant]
     Active Substance: CARBAMAZEPINE
     Indication: Product used for unknown indication
     Dosage: 200 MG, 1.5X2
     Route: 065

REACTIONS (3)
  - Cholecystitis [Not Recovered/Not Resolved]
  - Pneumonitis [Recovering/Resolving]
  - Cholangitis [Not Recovered/Not Resolved]

NARRATIVE: CASE EVENT DATE: 20240130
